FAERS Safety Report 14180940 (Version 1)
Quarter: 2017Q4

REPORT INFORMATION
  Report Type: Spontaneous
  Country: US (occurrence: US)
  Receive Date: 20171110
  Receipt Date: 20171110
  Transmission Date: 20180321
  Serious: Yes (Life-Threatening, Hospitalization, Disabling)
  Sender: FDA-Public Use
  Company Number: None

PATIENT
  Age: 61 Year
  Sex: Female
  Weight: 63.9 kg

DRUGS (1)
  1. LORZONE [Suspect]
     Active Substance: CHLORZOXAZONE
     Dosage: ?          QUANTITY:4 TABLET(S);?
     Route: 048
     Dates: start: 20170203, end: 20171019

REACTIONS (11)
  - Yellow skin [None]
  - Eyelid oedema [None]
  - Hepatic failure [None]
  - Fatigue [None]
  - Asthenia [None]
  - Gastrointestinal disorder [None]
  - International normalised ratio increased [None]
  - Pain [None]
  - Pruritus [None]
  - Liver transplant [None]
  - Rash [None]

NARRATIVE: CASE EVENT DATE: 20170903
